FAERS Safety Report 6530178-5 (Version None)
Quarter: 2010Q1

REPORT INFORMATION
  Report Type: 
  Country: None (occurrence: None)
  Receive Date: 20100107
  Receipt Date: 20100106
  Transmission Date: 20100710
  Serious: Yes (Other)
  Sender: FDA-Public Use
  Company Number: US-EISAI INC.-E2080-00219-SPO-US

PATIENT
  Age: 50 Year
  Sex: Male

DRUGS (6)
  1. BANZEL [Suspect]
     Route: 048
     Dates: start: 20090416, end: 20090423
  2. BANZEL [Suspect]
     Route: 048
     Dates: start: 20090424, end: 20090513
  3. BANZEL [Suspect]
     Route: 048
     Dates: start: 20090514, end: 20090629
  4. BANZEL [Suspect]
     Route: 048
     Dates: start: 20090630, end: 20090729
  5. BANZEL [Suspect]
     Route: 048
     Dates: start: 20090730, end: 20090923
  6. BANZEL [Suspect]
     Route: 048
     Dates: start: 20090924, end: 20091030

REACTIONS (1)
  - PARANOIA [None]
